FAERS Safety Report 5771141-1 (Version None)
Quarter: 2008Q2

REPORT INFORMATION
  Report Type: 
  Country: None (occurrence: None)
  Receive Date: 20080613
  Receipt Date: 20061117
  Transmission Date: 20081010
  Serious: No
  Sender: FDA-Public Use
  Company Number: IT-BAYER-200614677GDS

PATIENT
  Age: 60 Year
  Sex: Male

DRUGS (3)
  1. LEVITRA [Suspect]
     Indication: SEXUAL DYSFUNCTION
     Route: 048
  2. LEVITRA [Suspect]
     Route: 048
  3. LEVITRA [Suspect]
     Route: 048

REACTIONS (2)
  - DRUG INEFFECTIVE [None]
  - GRAND MAL CONVULSION [None]
